FAERS Safety Report 7563127-1 (Version None)
Quarter: 2011Q2

REPORT INFORMATION
  Report Type: 
  Country: None (occurrence: None)
  Receive Date: 20110622
  Receipt Date: 20110614
  Transmission Date: 20111010
  Serious: Yes (Hospitalization)
  Sender: FDA-Public Use
  Company Number: US-SANOFI-AVENTIS-2011SA024047

PATIENT
  Sex: Male
  Weight: 54.55 kg

DRUGS (15)
  1. PLAVIX [Suspect]
     Indication: STENT PLACEMENT
     Route: 048
     Dates: start: 20030101, end: 20110201
  2. FINASTERIDE [Concomitant]
  3. CYANOCOBALAMIN [Concomitant]
  4. PLAVIX [Suspect]
     Route: 048
     Dates: start: 20030101, end: 20110201
  5. PLAVIX [Suspect]
     Route: 048
     Dates: start: 20110101, end: 20110501
  6. FOLIC ACID [Concomitant]
  7. AMLODIPINE [Concomitant]
  8. ASPIRIN [Concomitant]
  9. ZOCOR [Concomitant]
  10. PLAVIX [Suspect]
     Route: 048
     Dates: start: 20110101, end: 20110501
  11. COZAAR [Concomitant]
  12. DOXAZOSIN MESYLATE [Concomitant]
  13. RANITIDINE HYDROCHLORIDE [Concomitant]
  14. CLONAZEPAM [Concomitant]
  15. TRAZODONE HCL [Concomitant]

REACTIONS (7)
  - HAEMOPTYSIS [None]
  - WEIGHT DECREASED [None]
  - DEVICE OCCLUSION [None]
  - LUNG NEOPLASM [None]
  - RENAL HAEMORRHAGE [None]
  - MYOCARDIAL INFARCTION [None]
  - PNEUMONIA [None]
